FAERS Safety Report 8408128-6 (Version None)
Quarter: 2012Q2

REPORT INFORMATION
  Report Type: 
  Country: None (occurrence: None)
  Receive Date: 20120601
  Receipt Date: 20120601
  Transmission Date: 20120825
  Serious: No
  Sender: FDA-Public Use
  Company Number: None

PATIENT
  Sex: Male
  Weight: 81.6475 kg

DRUGS (1)
  1. GLIMEPIRIDE [Suspect]
     Dosage: 1 TAB PER DAY
     Dates: start: 20120414, end: 20120415

REACTIONS (1)
  - RASH PRURITIC [None]
